FAERS Safety Report 8604193-1 (Version None)
Quarter: 2012Q3

REPORT INFORMATION
  Report Type: 
  Country: None (occurrence: None)
  Receive Date: 20120820
  Receipt Date: 20120814
  Transmission Date: 20120928
  Serious: No
  Sender: FDA-Public Use
  Company Number: US-PFIZER INC-2012198965

PATIENT
  Age: 55 Year
  Sex: Female
  Weight: 90.703 kg

DRUGS (4)
  1. ADVIL [Suspect]
     Indication: PAIN
     Dosage: UNK
     Route: 048
  2. LEVOTHYROXINE SODIUM [Concomitant]
     Dosage: UNK
  3. LIPITOR [Concomitant]
     Indication: BLOOD CHOLESTEROL ABNORMAL
     Dosage: UNK
  4. ADVIL PM [Suspect]
     Dosage: 400 MG (TOOK TWO 200MG CAPSULES ON THE SAME DAY), UNK
     Route: 048
     Dates: start: 20120814

REACTIONS (3)
  - WRONG DRUG ADMINISTERED [None]
  - PRODUCT LABEL ON WRONG PRODUCT [None]
  - SOMNOLENCE [None]
